FAERS Safety Report 21044066 (Version 1)
Quarter: 2022Q3

REPORT INFORMATION
  Report Type: Spontaneous
  Country: US (occurrence: None)
  Receive Date: 20220703
  Receipt Date: 20220703
  Transmission Date: 20221026
  Serious: Yes (Disabling)
  Sender: FDA-Public Use
  Company Number: None

PATIENT
  Age: 66 Year
  Sex: Female

DRUGS (9)
  1. ATORVASTATIN [Suspect]
     Active Substance: ATORVASTATIN
     Indication: Blood cholesterol increased
     Dosage: OTHER QUANTITY : 1 TABLET(S);?
     Route: 048
     Dates: start: 20211215, end: 20220615
  2. METHOTREXATE [Concomitant]
     Active Substance: METHOTREXATE
  3. BABY ASPIRIN [Concomitant]
  4. PREDNISONE [Concomitant]
     Active Substance: PREDNISONE
  5. FOLIC ACID [Concomitant]
     Active Substance: FOLIC ACID
  6. LORTAB [Concomitant]
     Active Substance: ACETAMINOPHEN\HYDROCODONE BITARTRATE
  7. MIRALAX [Concomitant]
     Active Substance: POLYETHYLENE GLYCOL 3350
  8. ZYRTEC [Concomitant]
     Active Substance: CETIRIZINE HYDROCHLORIDE
  9. COENZYME Q10 [Concomitant]
     Active Substance: DIETARY SUPPLEMENT\UBIDECARENONE

REACTIONS (6)
  - Myalgia [None]
  - Arthralgia [None]
  - Tendon pain [None]
  - Gait inability [None]
  - Movement disorder [None]
  - Pain [None]

NARRATIVE: CASE EVENT DATE: 20220615
